FAERS Safety Report 17731218 (Version 1)
Quarter: 2020Q2

REPORT INFORMATION
  Report Type: Spontaneous
  Country: US (occurrence: US)
  Receive Date: 20200430
  Receipt Date: 20200430
  Transmission Date: 20200714
  Serious: Yes (Other)
  Sender: FDA-Public Use
  Company Number: NVSC2020US117316

PATIENT
  Sex: Female

DRUGS (1)
  1. ZARXIO [Suspect]
     Active Substance: FILGRASTIM-SNDZ
     Indication: NEOPLASM MALIGNANT
     Dosage: UNK, ONE PREFILLED SYRINGE, QD FOR 7 DAYS STARTING 24 HOUR AFTER CHEMO THERAPY ON A 21 DAY CYCLE
     Route: 058

REACTIONS (2)
  - Glomerulonephritis [Unknown]
  - Dysuria [Not Recovered/Not Resolved]
